FAERS Safety Report 4861888-3 (Version None)
Quarter: 2005Q4

REPORT INFORMATION
  Report Type: 
  Country: None (occurrence: None)
  Receive Date: 20051129
  Receipt Date: 20050802
  Transmission Date: 20060501
  Serious: No
  Sender: FDA-Public Use
  Company Number: WAES 0508USA00727

PATIENT
  Age: 65 Year
  Sex: Female

DRUGS (7)
  1. ZETIA [Suspect]
     Indication: BLOOD CHOLESTEROL INCREASED
     Dosage: 10 MG DAILY PO
     Route: 048
     Dates: start: 20040901
  2. CRESTOR [Concomitant]
  3. EVISTA [Concomitant]
  4. PLAVIX [Concomitant]
  5. TRANXENE [Concomitant]
  6. ATENOLOL [Concomitant]
  7. VITAMINS (UNSPECIFIED) [Concomitant]

REACTIONS (3)
  - OEDEMA PERIPHERAL [None]
  - PRURITUS [None]
  - RASH [None]
